FAERS Safety Report 10727087 (Version 1)
Quarter: 2015Q1

REPORT INFORMATION
  Report Type: Spontaneous
  Country: US (occurrence: None)
  Receive Date: 20150120
  Receipt Date: 20150120
  Transmission Date: 20150721
  Serious: Yes (Hospitalization, Disabling)
  Sender: FDA-Public Use
  Company Number: None

PATIENT
  Age: 18 Year
  Sex: Male
  Weight: 48 kg

DRUGS (15)
  1. EPOPROSTENOL [Suspect]
     Active Substance: EPOPROSTENOL
     Indication: PULMONARY ARTERIAL HYPERTENSION
     Dosage: 349 NG/KG/MIN INTRAVNEOUS APPROXIMATELY 13 YEARS
     Route: 042
  2. D5W AND NACL 0.45% [Concomitant]
     Active Substance: DEXTROSE\SODIUM CHLORIDE
  3. SILDENAFIL. [Concomitant]
     Active Substance: SILDENAFIL
  4. VITAMIN, MULTIPLE (THERAGRAN) [Concomitant]
  5. VORICONAZOLE. [Concomitant]
     Active Substance: VORICONAZOLE
  6. COLLAGENASE [Concomitant]
     Active Substance: COLLAGENASE CLOSTRIDIUM HISTOLYTICUM
  7. ACETAMINOPHEN. [Concomitant]
     Active Substance: ACETAMINOPHEN
  8. LORATADINE. [Concomitant]
     Active Substance: LORATADINE
  9. BOSENTAN [Concomitant]
     Active Substance: BOSENTAN\BOSENTAN MONOHYDRATE
  10. CYPROHEPTADINE. [Concomitant]
     Active Substance: CYPROHEPTADINE
  11. FERROUS SULFATE [Concomitant]
     Active Substance: FERROUS SULFATE\FERROUS SULFATE, DRIED
  12. LOPERAMIDE (IMODIUM) [Concomitant]
  13. MELATONIN [Concomitant]
     Active Substance: MELATONIN
  14. OXACILLIN [Concomitant]
     Active Substance: OXACILLIN SODIUM
  15. FUROSEMIDE. [Concomitant]
     Active Substance: FUROSEMIDE

REACTIONS (1)
  - Basedow^s disease [None]

NARRATIVE: CASE EVENT DATE: 20130225
